FAERS Safety Report 12011697 (Version 3)
Quarter: 2016Q1

REPORT INFORMATION
  Report Type: Other
  Country: US (occurrence: US)
  Receive Date: 20160205
  Receipt Date: 20160317
  Transmission Date: 20160526
  Serious: Yes (Hospitalization, Other)
  Sender: FDA-Public Use
  Company Number: US-SHIRE-US201600893

PATIENT
  Age: 22 Year
  Sex: Female
  Weight: 113.38 kg

DRUGS (13)
  1. SYMBICORT [Concomitant]
     Active Substance: BUDESONIDE\FORMOTEROL FUMARATE DIHYDRATE
     Indication: PRODUCT USED FOR UNKNOWN INDICATION
     Dosage: 1 DF, OTHER, AS DIRECTED
     Route: 065
     Dates: start: 20150421
  2. HEPARIN [Concomitant]
     Active Substance: HEPARIN SODIUM
     Indication: CATHETER MANAGEMENT
     Dosage: 100 UNITS/ML, UNKNOWN
     Route: 042
     Dates: start: 20150922
  3. PEPCID                             /00305201/ [Concomitant]
     Active Substance: ALUMINUM HYDROXIDE\MAGNESIUM CARBONATE
     Indication: PRODUCT USED FOR UNKNOWN INDICATION
     Dosage: 1 DF, OTHER, AS DIRECTED
     Route: 048
     Dates: start: 20150421
  4. CINRYZE [Suspect]
     Active Substance: HUMAN C1-ESTERASE INHIBITOR
     Indication: HEREDITARY ANGIOEDEMA
     Dosage: 1500 UNITS, OTHER (EVERY 3 DAYS)
     Route: 042
  5. CINRYZE [Suspect]
     Active Substance: HUMAN C1-ESTERASE INHIBITOR
     Indication: PROPHYLAXIS
     Dosage: 1000 UNITS, OTHER (EVERY 3 DAYS)
     Route: 042
  6. SODIUM CHLORIDE. [Concomitant]
     Active Substance: SODIUM CHLORIDE
     Indication: PRODUCT USED FOR UNKNOWN INDICATION
     Dosage: 0.9%, OTHER, AS DIRECTED
     Route: 042
     Dates: start: 20150922
  7. LMX                                /00033401/ [Concomitant]
     Indication: PRODUCT USED FOR UNKNOWN INDICATION
     Dosage: 4%, OTHER, AS DIRECTED
     Route: 061
     Dates: start: 20150922
  8. STERILE WATER [Concomitant]
     Active Substance: WATER
     Indication: PRODUCT USED FOR UNKNOWN INDICATION
     Dosage: 5 ML, OTHER, AS DIRECTED
     Route: 065
     Dates: start: 20150909
  9. ADVIL [Concomitant]
     Active Substance: IBUPROFEN
     Indication: PRODUCT USED FOR UNKNOWN INDICATION
     Dosage: 1 DF, AS REQ^D, AS DIRECTED, AS NEEDED
     Route: 048
     Dates: start: 20150831
  10. FIRAZYR [Concomitant]
     Active Substance: ICATIBANT ACETATE
     Indication: HEREDITARY ANGIOEDEMA
     Dosage: 30 MG, AS REQ^D, AS NEEDED
     Route: 058
  11. EPIPEN [Concomitant]
     Active Substance: EPINEPHRINE
     Indication: ANAPHYLACTIC REACTION
     Dosage: 0.3 MG, AS REQ^D
     Route: 030
     Dates: start: 20150909
  12. TYLENOL [Concomitant]
     Active Substance: ACETAMINOPHEN
     Indication: PRODUCT USED FOR UNKNOWN INDICATION
     Dosage: 1 DF, OTHER
     Route: 048
     Dates: start: 20150831
  13. ZYRTEC [Concomitant]
     Active Substance: CETIRIZINE HYDROCHLORIDE
     Indication: PRODUCT USED FOR UNKNOWN INDICATION
     Dosage: 1 DF, OTHER, AS DIRECTED
     Route: 048
     Dates: start: 20150421

REACTIONS (3)
  - Device issue [Unknown]
  - Medical device site thrombosis [Recovering/Resolving]
  - Prescribed overdose [Not Recovered/Not Resolved]

NARRATIVE: CASE EVENT DATE: 20160122
